FAERS Safety Report 26043069 (Version 1)
Quarter: 2025Q4

REPORT INFORMATION
  Report Type: Spontaneous
  Country: US (occurrence: US)
  Receive Date: 20251113
  Receipt Date: 20251113
  Transmission Date: 20260117
  Serious: No
  Sender: JOHNSON AND JOHNSON
  Company Number: US-JNJFOC-20251031918

PATIENT
  Sex: Male

DRUGS (4)
  1. INLEXZO [Suspect]
     Active Substance: GEMCITABINE
     Indication: Bladder cancer
     Route: 043
     Dates: start: 20251014, end: 20251024
  2. INLEXZO [Suspect]
     Active Substance: GEMCITABINE
  3. GEMTESA [Concomitant]
     Active Substance: VIBEGRON
     Indication: Product used for unknown indication
  4. PYRIDIUM [Concomitant]
     Active Substance: PHENAZOPYRIDINE
     Indication: Product used for unknown indication

REACTIONS (2)
  - Dysuria [Unknown]
  - Penile pain [Unknown]

NARRATIVE: CASE EVENT DATE: 20251001
